FAERS Safety Report 6044540-0 (Version None)
Quarter: 2009Q1

REPORT INFORMATION
  Report Type: 
  Country: None (occurrence: None)
  Receive Date: 20090120
  Receipt Date: 20090114
  Transmission Date: 20090719
  Serious: Yes (Hospitalization, Other)
  Sender: FDA-Public Use
  Company Number: US-BIOGENIDEC-2006BI009822

PATIENT
  Age: 59 Year
  Sex: Female
  Weight: 61 kg

DRUGS (2)
  1. AVONEX [Suspect]
     Indication: MULTIPLE SCLEROSIS
     Route: 030
     Dates: start: 19990503, end: 20060101
  2. AVONEX [Suspect]
     Route: 030
     Dates: start: 20060101

REACTIONS (4)
  - COLON CANCER STAGE I [None]
  - CONVULSION [None]
  - DEPRESSION [None]
  - INFLUENZA LIKE ILLNESS [None]
